FAERS Safety Report 4885150-8 (Version None)
Quarter: 2005Q4

REPORT INFORMATION
  Report Type: 
  Country: None (occurrence: None)
  Receive Date: 20051201
  Receipt Date: 20050912
  Transmission Date: 20060501
  Serious: No
  Sender: FDA-Public Use
  Company Number: 2005PV002156

PATIENT
  Age: 41 Year
  Sex: Female
  Weight: 103.8737 kg

DRUGS (5)
  1. BYETTA [Suspect]
     Indication: DIABETES MELLITUS NON-INSULIN-DEPENDENT
     Dosage: 10 MCG; BID; SC; 5 MCG; BID; SC
     Route: 058
     Dates: start: 20050806, end: 20050905
  2. BYETTA [Suspect]
     Indication: DIABETES MELLITUS NON-INSULIN-DEPENDENT
     Dosage: 10 MCG; BID; SC; 5 MCG; BID; SC
     Route: 058
     Dates: start: 20050906
  3. GLUCOPHAGE [Concomitant]
  4. GLUCOTROL XL [Concomitant]
  5. ACTOS [Concomitant]

REACTIONS (6)
  - BLOOD GLUCOSE DECREASED [None]
  - DECREASED APPETITE [None]
  - DRUG EFFECT DECREASED [None]
  - EARLY SATIETY [None]
  - NAUSEA [None]
  - WEIGHT DECREASED [None]
